FAERS Safety Report 18366278 (Version 1)
Quarter: 2020Q4

REPORT INFORMATION
  Report Type: Spontaneous
  Country: FR (occurrence: FR)
  Receive Date: 20201009
  Receipt Date: 20201009
  Transmission Date: 20210114
  Serious: Yes (Other)
  Sender: FDA-Public Use
  Company Number: FR-MYLANLABS-2020M1085041

PATIENT
  Age: 75 Year
  Sex: Female

DRUGS (1)
  1. AMLODIPINE/VALSARTAN MYLAN 5 MG/160 MG FILM-COATED TABLETS [Suspect]
     Active Substance: AMLODIPINE\VALSARTAN
     Indication: HYPERTENSION
     Dosage: UNK
     Dates: start: 201911, end: 20200914

REACTIONS (15)
  - Diarrhoea [Unknown]
  - Neuropathy peripheral [Unknown]
  - Paraesthesia [Unknown]
  - Rash [Unknown]
  - Oedema peripheral [Unknown]
  - Joint swelling [Unknown]
  - Tachycardia [Unknown]
  - Peripheral swelling [Unknown]
  - Back pain [Unknown]
  - Arthralgia [Unknown]
  - Headache [Unknown]
  - Dizziness [Unknown]
  - Abdominal discomfort [Unknown]
  - Palpitations [Unknown]
  - Orthostatic hypotension [Unknown]
